FAERS Safety Report 9895574 (Version 1)
Quarter: 2014Q1

REPORT INFORMATION
  Report Type: Spontaneous
  Country: US (occurrence: US)
  Receive Date: 20140213
  Receipt Date: 20140213
  Transmission Date: 20141002
  Serious: No
  Sender: FDA-Public Use
  Company Number: US-BRISTOL-MYERS SQUIBB COMPANY-17375049

PATIENT
  Age: 63 Year
  Sex: Female

DRUGS (14)
  1. ABATACEPT SUBQ INJECTION 125MG/ML [Suspect]
     Route: 058
  2. FLEXERIL [Concomitant]
     Dosage: TAB
  3. ULTRAM [Concomitant]
     Dosage: TAB
  4. PREDNISONE [Concomitant]
     Dosage: TAB
  5. ZYRTEC [Concomitant]
     Dosage: TAB
  6. TRAZODONE HCL [Concomitant]
     Dosage: TAB
  7. LISINOPRIL [Concomitant]
     Dosage: TAB
  8. FENOFIBRATE [Concomitant]
     Dosage: CAP
  9. VITAMIN E [Concomitant]
     Dosage: 1DF=1000 UNIT?CAP
  10. LEVOTHYROXIN [Concomitant]
     Dosage: TAB
  11. CLARITIN [Concomitant]
     Dosage: TAB
  12. VITAMIN D [Concomitant]
     Dosage: 1DF=2000UNIT
  13. VITAMIN C [Concomitant]
     Dosage: CAP
  14. COENZYME-Q10 [Concomitant]
     Dosage: CAP

REACTIONS (4)
  - Weight increased [Unknown]
  - Joint swelling [Unknown]
  - Local swelling [Unknown]
  - Pain [Unknown]
